FAERS Safety Report 8814222 (Version 1)
Quarter: 2012Q4

REPORT INFORMATION
  Report Type: 
  Country: US (occurrence: US)
  Receive Date: 20120928
  Receipt Date: 20120928
  Transmission Date: 20130627
  Serious: Yes (Hospitalization)
  Sender: FDA-Public Use
  Company Number: US-BAYER-2012-099993

PATIENT
  Age: 38 Year
  Sex: Female

DRUGS (4)
  1. YASMIN [Suspect]
  2. DILAUDID [Concomitant]
     Indication: PAIN
     Dosage: UNK UNK, PRN
  3. PERCOCET [Concomitant]
  4. IBUPROFEN [Concomitant]

REACTIONS (1)
  - Deep vein thrombosis [None]
